FAERS Safety Report 8635650 (Version 10)
Quarter: 2013Q4

REPORT INFORMATION
  Report Type: Report from Study
  Country: DE (occurrence: DE)
  Receive Date: 20120626
  Receipt Date: 20131220
  Transmission Date: 20140711
  Serious: Yes (Hospitalization)
  Sender: FDA-Public Use
  Company Number: DE-PFIZER INC-2012150357

PATIENT
  Age: 75 Year
  Sex: Male
  Weight: 80 kg

DRUGS (10)
  1. PANTOPRAZOLE [Concomitant]
     Indication: PROPHYLAXIS AGAINST GASTROINTESTINAL ULCER
     Dosage: UNK
     Dates: start: 20071109
  2. HYDROCHLOROTHIAZIDE [Concomitant]
     Indication: RENAL FAILURE
     Dosage: UNK
  3. AMLODIPINE [Concomitant]
     Indication: HYPERTENSION
     Dosage: UNK
  4. RAPAMUNE [Suspect]
     Indication: PROPHYLAXIS AGAINST TRANSPLANT REJECTION
     Dosage: 2 MG/DAY
     Dates: start: 20080210, end: 20081013
  5. CYCLOSPORIN A [Suspect]
     Indication: IMMUNOSUPPRESSION
     Dosage: UNK
     Dates: start: 20071109, end: 20130417
  6. CELLCEPT [Suspect]
     Indication: IMMUNOSUPPRESSION
     Dosage: UNK
     Dates: start: 20120107
  7. RAMIPRIL [Concomitant]
     Indication: HYPERTENSION
     Dosage: UNK
  8. MOXONIDINE [Concomitant]
     Indication: HYPERTENSION
     Dosage: UNK
  9. ALT-INSULIN [Concomitant]
     Indication: DIABETES MELLITUS
     Dosage: UNK
  10. PROTAPHANE HM [Concomitant]
     Indication: DIABETES MELLITUS
     Dosage: UNK

REACTIONS (1)
  - Hepatocellular carcinoma [Not Recovered/Not Resolved]
